FAERS Safety Report 8774372 (Version 2)
Quarter: 2012Q4

REPORT INFORMATION
  Report Type: 
  Country: US (occurrence: US)
  Receive Date: 20120907
  Receipt Date: 20120924
  Transmission Date: 20130627
  Serious: Yes (Other)
  Sender: FDA-Public Use
  Company Number: US-ELI_LILLY_AND_COMPANY-US201208008902

PATIENT
  Age: 76 None
  Sex: Female

DRUGS (2)
  1. HUMALOG 25% LISPRO, 75% NPL [Suspect]
     Indication: DIABETES MELLITUS
     Dosage: 5 u, bid
     Dates: start: 20120505
  2. HUMALOG 25% LISPRO, 75% NPL [Suspect]
     Dosage: 5 u, qd
     Dates: end: 20120821

REACTIONS (7)
  - Skin ulcer [Recovering/Resolving]
  - Pruritus generalised [Recovered/Resolved]
  - Hyperhidrosis [Recovering/Resolving]
  - Insomnia [Recovering/Resolving]
  - Blood pressure increased [Unknown]
  - Stress [Unknown]
  - Intentional drug misuse [Recovered/Resolved]
